FAERS Safety Report 6920947-1 (Version None)
Quarter: 2010Q3

REPORT INFORMATION
  Report Type: 
  Country: None (occurrence: None)
  Receive Date: 20100812
  Receipt Date: 20100731
  Transmission Date: 20110219
  Serious: Yes (Other)
  Sender: FDA-Public Use
  Company Number: IL-PFIZER INC-2010096201

PATIENT
  Age: 65 Year
  Sex: Female

DRUGS (2)
  1. CHAMPIX [Suspect]
     Dosage: UNK
     Dates: start: 20100501
  2. LIPITOR [Concomitant]
     Dosage: 10 MG, 1X/DAY

REACTIONS (8)
  - ABNORMAL DREAMS [None]
  - APATHY [None]
  - DEPRESSED MOOD [None]
  - DYSPNOEA [None]
  - HYPOTHERMIA [None]
  - INSOMNIA [None]
  - NERVOUSNESS [None]
  - WEIGHT INCREASED [None]
